FAERS Safety Report 4709621-X (Version None)
Quarter: 2005Q3

REPORT INFORMATION
  Report Type: 
  Country: None (occurrence: None)
  Receive Date: 20050705
  Receipt Date: 20050620
  Transmission Date: 20060218
  Serious: Yes (Death, Hospitalization)
  Sender: FDA-Public Use
  Company Number: B0385179A

PATIENT
  Age: 46 Year
  Sex: Female

DRUGS (4)
  1. MYLERAN [Suspect]
     Indication: CHRONIC MYELOID LEUKAEMIA
  2. INTERFERON ALFA                           (INTERFERON ALFA) [Suspect]
     Indication: CHRONIC MYELOID LEUKAEMIA
     Dosage: SUBCUTANEOUS
     Route: 058
  3. IMATINIB MESYLATE                                       (IMATINIB MESY [Suspect]
     Indication: CHRONIC MYELOID LEUKAEMIA
     Dates: start: 20030202
  4. CYTARABINE [Concomitant]

REACTIONS (20)
  - BACTERIA BLOOD IDENTIFIED [None]
  - BONE MARROW DEPRESSION [None]
  - BONE MARROW DISORDER [None]
  - ESCHERICHIA INFECTION [None]
  - FEBRILE NEUTROPENIA [None]
  - FIBROSIS [None]
  - GASTROENTERITIS [None]
  - GENERAL PHYSICAL HEALTH DETERIORATION [None]
  - LUNG INFILTRATION [None]
  - MARROW HYPERPLASIA [None]
  - MUCORMYCOSIS [None]
  - NEUROLOGICAL SYMPTOM [None]
  - PALLOR [None]
  - PANCYTOPENIA [None]
  - PLATELET COUNT INCREASED [None]
  - PSYCHIATRIC SYMPTOM [None]
  - RECTAL HAEMORRHAGE [None]
  - RESPIRATORY FAILURE [None]
  - THERAPY NON-RESPONDER [None]
  - WHITE BLOOD CELL COUNT INCREASED [None]
